FAERS Safety Report 9291478 (Version 1)
Quarter: 2013Q2

REPORT INFORMATION
  Report Type: Spontaneous
  Country: US (occurrence: US)
  Receive Date: 20130515
  Receipt Date: 20130515
  Transmission Date: 20140414
  Serious: Yes (Hospitalization)
  Sender: FDA-Public Use
  Company Number: US-GILEAD-2012-0062375

PATIENT
  Age: 81 Year
  Sex: Female

DRUGS (9)
  1. LETAIRIS [Suspect]
     Indication: PULMONARY HYPERTENSION
     Dosage: 5 MG, UNK
     Route: 048
     Dates: start: 20120618, end: 20121217
  2. LETAIRIS [Suspect]
     Indication: COR PULMONALE CHRONIC
  3. LASIX                              /00032601/ [Concomitant]
  4. METOPROLOL [Concomitant]
  5. CYMBALTA [Concomitant]
  6. PRILOSEC                           /00661201/ [Concomitant]
  7. ATIVAN [Concomitant]
  8. MUCINEX [Concomitant]
  9. COUMADINE [Concomitant]

REACTIONS (4)
  - Diastolic dysfunction [Unknown]
  - Cardiac failure congestive [Unknown]
  - Dyspnoea [Unknown]
  - Fluid overload [Recovered/Resolved]
